FAERS Safety Report 5626995-6 (Version None)
Quarter: 2008Q1

REPORT INFORMATION
  Report Type: 
  Country: None (occurrence: None)
  Receive Date: 20080117
  Receipt Date: 20070614
  Transmission Date: 20080703
  Serious: Yes (Other)
  Sender: FDA-Public Use
  Company Number: 502330

PATIENT
  Age: 23 Year
  Sex: Female

DRUGS (1)
  1. VESANOID [Suspect]
     Indication: ACUTE PROMYELOCYTIC LEUKAEMIA
     Dosage: 70 MG

REACTIONS (2)
  - HEADACHE [None]
  - PLEURAL EFFUSION [None]
